FAERS Safety Report 25299072 (Version 3)
Quarter: 2025Q3

REPORT INFORMATION
  Report Type: Spontaneous
  Country: US (occurrence: US)
  Receive Date: 20250512
  Receipt Date: 20250811
  Transmission Date: 20251021
  Serious: Yes (Other)
  Sender: ABBVIE
  Company Number: US-ABBVIE-6273229

PATIENT
  Age: 54 Year
  Sex: Female
  Weight: 123 kg

DRUGS (28)
  1. ELAHERE [Suspect]
     Active Substance: MIRVETUXIMAB SORAVTANSINE-GYNX
     Indication: Ovarian cancer
     Dosage: STRENGTH: 5 MG/KG INJECTION
     Route: 042
     Dates: start: 20230504, end: 20250516
  2. ELAHERE [Suspect]
     Active Substance: MIRVETUXIMAB SORAVTANSINE-GYNX
     Indication: Ovarian cancer
     Dosage: STRENGTH: 5 MG/KG INJECTION
     Route: 042
     Dates: start: 2025
  3. GLUCOPHAGE [Concomitant]
     Active Substance: METFORMIN HYDROCHLORIDE
     Indication: Product used for unknown indication
     Dosage: TAKE 1 TABLET (500 MG TOTAL) BY MOUTH 2 (TWO) TIMES A DAY WITH ?BREAKFAST AND DINNER.
  4. HUMULIN R [Concomitant]
     Active Substance: INSULIN HUMAN
     Indication: Product used for unknown indication
  5. ATIVAN [Concomitant]
     Active Substance: LORAZEPAM
     Indication: Product used for unknown indication
     Dosage: 0.5 MG?TAKE 1 TABLET (0.5 MG TOTAL) BY MOUTH DAILY AS NEEDED FOR ANXIETY. MAX ?DAILY AMOUNT: 0.5 MG
     Route: 048
  6. DEXTROSE [Concomitant]
     Active Substance: DEXTROSE MONOHYDRATE
     Indication: Product used for unknown indication
  7. DECADRON [Concomitant]
     Active Substance: DEXAMETHASONE
     Indication: Product used for unknown indication
     Route: 048
  8. LUNESTA [Concomitant]
     Active Substance: ESZOPICLONE
     Indication: Product used for unknown indication
     Route: 048
  9. DILAUDID [Concomitant]
     Active Substance: HYDROMORPHONE HYDROCHLORIDE
     Indication: Pain
     Dosage: TAKE 1-2 TABLETS (4-8 MG TOTAL) BY MOUTH 2 (TWO) TIMES A DAY AS ?NEEDED FOR PAIN. MAX DAILY AMOUN...
     Route: 048
     Dates: start: 20250622
  10. DILAUDID [Concomitant]
     Active Substance: HYDROMORPHONE HYDROCHLORIDE
     Indication: Pain
     Dosage: TAKE 1-2 TABLETS (4-8 MG TOTAL) BY MOUTH 2 (TWO) TIMES A DAY AS NEEDED FOR PAIN. MAX DAILY AMOUNT...
  11. DUONEB [Concomitant]
     Active Substance: ALBUTEROL SULFATE\IPRATROPIUM BROMIDE
     Indication: Wheezing
     Dosage: 0.5-2.5 MG/3 ML?INHALE 3 ML (1 AMPULE TOTAL) VIA NEBULIZER EVERY 4 (FOUR) HOURS AS ?NEEDED FOR WH...
  12. SYNTHROID [Concomitant]
     Active Substance: LEVOTHYROXINE SODIUM
     Indication: Product used for unknown indication
     Route: 048
  13. XIIDRA [Concomitant]
     Active Substance: LIFITEGRAST
     Indication: Product used for unknown indication
     Dosage: APPLY 1 DROP TO EYE EVERY 12 (TWELVE) HOURS?5 % OPHTHALMIC SOLUTION
  14. LINZESS [Concomitant]
     Active Substance: LINACLOTIDE
     Indication: Product used for unknown indication
     Route: 048
  15. COMPAZINE [Concomitant]
     Active Substance: PROCHLORPERAZINE MALEATE
     Indication: Product used for unknown indication
     Dosage: TAKE 1 TABLET (10 MG TOTAL) BY MOUTH EVERY 6 (SIX) HOURS AS NEEDED
     Route: 048
  16. SYSTANE COMPLETE [Concomitant]
     Active Substance: PROPYLENE GLYCOL
     Indication: Product used for unknown indication
     Dosage: 0.6 % SOLUTION?PLACE 1 DROP INTO BOTH EYES DAILY AS NEEDED
  17. VALTREX [Concomitant]
     Active Substance: VALACYCLOVIR HYDROCHLORIDE
     Indication: Product used for unknown indication
     Route: 048
  18. NEURONTIN [Concomitant]
     Active Substance: GABAPENTIN
     Indication: Product used for unknown indication
     Route: 048
  19. HUMALOG KWIKPEN [Concomitant]
     Active Substance: INSULIN LISPRO
     Indication: Product used for unknown indication
  20. VENTOLIN HFA [Concomitant]
     Active Substance: ALBUTEROL SULFATE
     Indication: Product used for unknown indication
     Dosage: INHALE 1-2 PUFFS INTO THE LUNGS EVERY 6 (SIX) HOURS AS NEEDED FOR WHEEZING.?108 (90 BASE) MCG/ACT...
  21. ELIQUIS [Concomitant]
     Active Substance: APIXABAN
     Indication: Product used for unknown indication
     Dosage: TAKE 1 TABLET (5 MG TOTAL) BY MOUTH 2 (TWO) TIMES A DAY.
     Route: 048
  22. BUSPAR [Concomitant]
     Active Substance: BUSPIRONE HYDROCHLORIDE
     Indication: Product used for unknown indication
     Route: 048
  23. CELEXA [Concomitant]
     Active Substance: CITALOPRAM HYDROBROMIDE
     Indication: Product used for unknown indication
     Route: 048
  24. COZAAR [Concomitant]
     Active Substance: LOSARTAN POTASSIUM
     Indication: Product used for unknown indication
     Route: 048
  25. NARCAN [Concomitant]
     Active Substance: NALOXONE HYDROCHLORIDE
     Indication: Product used for unknown indication
  26. PROTONIX [Concomitant]
     Active Substance: PANTOPRAZOLE SODIUM
     Indication: Product used for unknown indication
     Route: 048
  27. PREDNISOLONE ACETATE [Concomitant]
     Active Substance: PREDNISOLONE ACETATE
     Indication: Product used for unknown indication
     Dosage: PLACE 2 DROPS INTO BOTH EYES 4 (FOUR) TIMES A DAY?1 % OPHTHALMIC SUSPENSION
  28. DELTASONE [Concomitant]
     Active Substance: PREDNISONE
     Indication: Product used for unknown indication
     Route: 048

REACTIONS (8)
  - Dyskinesia [Not Recovered/Not Resolved]
  - Unevaluable event [Recovered/Resolved]
  - Dyskinesia [Not Recovered/Not Resolved]
  - Unevaluable event [Recovered/Resolved]
  - Muscle tightness [Recovered/Resolved]
  - Muscle tightness [Recovered/Resolved]
  - Anxiety [Recovered/Resolved]
  - Ischaemia [Unknown]

NARRATIVE: CASE EVENT DATE: 20250405
